FAERS Safety Report 19674434 (Version 1)
Quarter: 2021Q3

REPORT INFORMATION
  Report Type: Spontaneous
  Country: US (occurrence: US)
  Receive Date: 20210808
  Receipt Date: 20210808
  Transmission Date: 20211014
  Serious: Yes (Hospitalization)
  Sender: FDA-Public Use
  Company Number: None

PATIENT
  Sex: Female
  Weight: 44.9 kg

DRUGS (6)
  1. CYCLOPHOSPHAMIDE. [Suspect]
     Active Substance: CYCLOPHOSPHAMIDE
     Dates: end: 20210702
  2. CYTARABINE. [Suspect]
     Active Substance: CYTARABINE
     Dates: end: 20210712
  3. METHOTREXATE. [Suspect]
     Active Substance: METHOTREXATE
     Dates: end: 20210604
  4. ONCASPAR [Suspect]
     Active Substance: PEGASPARGASE
     Dates: end: 20210716
  5. MERCAPTOPURINE. [Suspect]
     Active Substance: MERCAPTOPURINE
     Dates: end: 20210715
  6. VINCRISTINE SULFATE. [Suspect]
     Active Substance: VINCRISTINE SULFATE
     Dates: end: 20210722

REACTIONS (25)
  - Malaise [None]
  - Asthenia [None]
  - Vomiting [None]
  - Packed red blood cell transfusion [None]
  - Platelet count decreased [None]
  - Alanine aminotransferase increased [None]
  - Chills [None]
  - Decreased appetite [None]
  - Abdominal tenderness [None]
  - White blood cell count decreased [None]
  - Haematocrit decreased [None]
  - Aspartate aminotransferase increased [None]
  - Enterobacter infection [None]
  - Underweight [None]
  - Haemoglobin decreased [None]
  - Pyrexia [None]
  - Dyspnoea exertional [None]
  - Nausea [None]
  - Abdominal pain [None]
  - Headache [None]
  - Platelet transfusion [None]
  - Neutropenia [None]
  - Blood glucose increased [None]
  - Pallor [None]
  - Culture urine positive [None]

NARRATIVE: CASE EVENT DATE: 20210728
